FAERS Safety Report 11184301 (Version 1)
Quarter: 2015Q2

REPORT INFORMATION
  Report Type: Spontaneous
  Country: BR (occurrence: BR)
  Receive Date: 20150612
  Receipt Date: 20150612
  Transmission Date: 20150821
  Serious: Yes (Death, Congenital Anomaly)
  Sender: FDA-Public Use
  Company Number: BR-B.I. PHARMACEUTICALS,INC./RIDGEFIELD-2015-BI-31007BR

PATIENT
  Sex: Female

DRUGS (1)
  1. TRADJENTA [Suspect]
     Active Substance: LINAGLIPTIN
     Indication: PRODUCT USED FOR UNKNOWN INDICATION
     Route: 065

REACTIONS (1)
  - Death [Fatal]
